FAERS Safety Report 22520994 (Version 1)
Quarter: 2023Q2

REPORT INFORMATION
  Report Type: Spontaneous
  Country: US (occurrence: None)
  Receive Date: 20230603
  Receipt Date: 20230603
  Transmission Date: 20230722
  Serious: Yes (Hospitalization)
  Sender: FDA-Public Use
  Company Number: None

PATIENT
  Sex: Female
  Weight: 108.86 kg

DRUGS (20)
  1. CAPECITABINE [Suspect]
     Active Substance: CAPECITABINE
     Indication: Colon cancer
     Dosage: 450 MG TWICE DAILY ORAL
     Route: 048
  2. CAPECITABINE [Suspect]
     Active Substance: CAPECITABINE
     Indication: Colon cancer
     Dosage: 1000 MG TWICE DAILY ORAL
     Route: 048
  3. OZEMPIC [Concomitant]
     Active Substance: SEMAGLUTIDE
  4. BUSPIRONE [Concomitant]
     Active Substance: BUSPIRONE HYDROCHLORIDE
  5. SENNA [Concomitant]
     Active Substance: SENNA LEAF\SENNOSIDES\SENNOSIDES A AND B
  6. BREZTRI [Concomitant]
     Active Substance: BUDESONIDE\FORMOTEROL\GLYCOPYRROLATE
  7. VITAMIN D [Concomitant]
     Active Substance: VITAMIN D NOS
  8. LISINOPRIL [Concomitant]
     Active Substance: LISINOPRIL
  9. FUROSEMIDE [Concomitant]
     Active Substance: FUROSEMIDE
  10. LEVOTHYROXINE [Concomitant]
     Active Substance: LEVOTHYROXINE
  11. ALENDRONATE [Concomitant]
     Active Substance: ALENDRONATE SODIUM
  12. PRAMIPEXOLE [Concomitant]
     Active Substance: PRAMIPEXOLE
  13. LANTUS [Concomitant]
     Active Substance: INSULIN GLARGINE
  14. ASPIRIN [Concomitant]
     Active Substance: ASPIRIN
  15. FERROUS SULFATE [Concomitant]
     Active Substance: FERROUS SULFATE
  16. MONTELUKAST [Concomitant]
     Active Substance: MONTELUKAST SODIUM
  17. NABUMETONE [Concomitant]
     Active Substance: NABUMETONE
  18. GABAPENTIN [Concomitant]
     Active Substance: GABAPENTIN
  19. SUCRALFATE [Concomitant]
     Active Substance: SUCRALFATE
  20. TRAMADOL [Concomitant]
     Active Substance: TRAMADOL

REACTIONS (1)
  - Hospitalisation [None]
